FAERS Safety Report 17268037 (Version 1)
Quarter: 2020Q1

REPORT INFORMATION
  Report Type: Spontaneous
  Country: US (occurrence: US)
  Receive Date: 20191220
  Receipt Date: 20191220
  Transmission Date: 20200409
  Serious: Yes (Hospitalization)
  Sender: FDA-Public Use
  Company Number: None

PATIENT
  Age: 78 Year
  Sex: Female
  Weight: 56.6 kg

DRUGS (2)
  1. CARBOPLATIN. [Suspect]
     Active Substance: CARBOPLATIN
     Dates: end: 20191122
  2. TAXOL [Suspect]
     Active Substance: PACLITAXEL
     Dates: end: 20191202

REACTIONS (3)
  - Pyrexia [None]
  - Dyspnoea [None]
  - Neutrophil count increased [None]

NARRATIVE: CASE EVENT DATE: 20191206
